FAERS Safety Report 7349196-2 (Version None)
Quarter: 2011Q1

REPORT INFORMATION
  Report Type: 
  Country: None (occurrence: None)
  Receive Date: 20110314
  Receipt Date: 20110228
  Transmission Date: 20110831
  Serious: Yes (Other)
  Sender: FDA-Public Use
  Company Number: ES-PURDUE-USA-2011-0064985

PATIENT
  Age: 81 Year
  Sex: Male

DRUGS (1)
  1. TRAMADOL (SIMILAR TO NDA 21-745) [Suspect]
     Indication: NECK PAIN
     Dosage: 200 MG, DAILY
     Route: 048
     Dates: start: 20100330, end: 20100406

REACTIONS (1)
  - HALLUCINATION, VISUAL [None]
